FAERS Safety Report 9329364 (Version 2)
Quarter: 2015Q1

REPORT INFORMATION
  Report Type: Spontaneous
  Country: US (occurrence: None)
  Receive Date: 20130531
  Receipt Date: 20150226
  Transmission Date: 20150721
  Serious: Yes (Hospitalization)
  Sender: FDA-Public Use
  Company Number: THQ2013A04025

PATIENT
  Age: 48 Year
  Sex: Male
  Weight: 104.3 kg

DRUGS (9)
  1. XANAX [Suspect]
     Active Substance: ALPRAZOLAM
     Indication: ANXIETY
     Route: 048
  2. LYRICA [Suspect]
     Active Substance: PREGABALIN
     Indication: PAIN
     Route: 048
     Dates: start: 20130508
  3. LYRICA [Suspect]
     Active Substance: PREGABALIN
     Indication: INTERVERTEBRAL DISC PROTRUSION
     Route: 048
     Dates: start: 20130508
  4. CARVEDILOL (CARVEDILOL) [Suspect]
     Active Substance: CARVEDILOL
     Indication: BLOOD PRESSURE ABNORMAL
     Dosage: 0.5, BID, ORAL
     Route: 048
  5. PREVACID [Suspect]
     Active Substance: LANSOPRAZOLE
     Indication: ABDOMINAL DISCOMFORT
  6. LYRICA [Suspect]
     Active Substance: PREGABALIN
     Indication: SPINAL OSTEOARTHRITIS
     Route: 048
     Dates: start: 20130508
  7. OXYCODONE HYDROCHLORIDE. [Suspect]
     Active Substance: OXYCODONE HYDROCHLORIDE
     Indication: PAIN
  8. ROXICODONE (OXYCODONE HYDROCHLORIDE)(TABLETS) [Concomitant]
  9. LYRICA [Suspect]
     Active Substance: PREGABALIN
     Indication: LUMBAR SPINAL STENOSIS
     Route: 048
     Dates: start: 20130508

REACTIONS (13)
  - Pulmonary thrombosis [None]
  - Angina pectoris [None]
  - Chest pain [None]
  - Musculoskeletal stiffness [None]
  - Helicobacter infection [None]
  - Drug interaction [None]
  - Pyrexia [None]
  - Lung infection [None]
  - Pneumonia [None]
  - Drug ineffective [None]
  - Intentional product misuse [None]
  - Rhabdomyolysis [None]
  - Therapeutic response unexpected [None]

NARRATIVE: CASE EVENT DATE: 20120830
